FAERS Safety Report 16143060 (Version 1)
Quarter: 2019Q2

REPORT INFORMATION
  Report Type: Spontaneous
  Country: FR (occurrence: FR)
  Receive Date: 20190401
  Receipt Date: 20190401
  Transmission Date: 20190711
  Serious: Yes (Death, Life-Threatening, Hospitalization)
  Sender: FDA-Public Use
  Company Number: FR-PFIZER INC-2019137483

PATIENT
  Age: 71 Year
  Sex: Male

DRUGS (5)
  1. ROCEPHINE [Concomitant]
     Active Substance: CEFTRIAXONE SODIUM
     Indication: URINARY TRACT INFECTION
     Dosage: UNK
     Route: 042
     Dates: start: 20170605, end: 20170608
  2. BACTRIM [Interacting]
     Active Substance: SULFAMETHOXAZOLE\TRIMETHOPRIM
     Indication: URINARY TRACT INFECTION
     Dosage: UNK
     Route: 042
     Dates: start: 20170609, end: 20170617
  3. CLINDAMYCIN PHOSPHATE. [Suspect]
     Active Substance: CLINDAMYCIN PHOSPHATE
     Indication: URINARY TRACT INFECTION
     Dosage: UNK
     Route: 030
     Dates: start: 20170609, end: 20170617
  4. COUMADINE [Interacting]
     Active Substance: WARFARIN SODIUM
     Indication: AORTIC VALVE REPLACEMENT
     Dosage: 2 MG, 1X/DAY
     Route: 048
     Dates: start: 201410, end: 20170613
  5. FLAGYL [METRONIDAZOLE BENZOATE] [Interacting]
     Active Substance: METRONIDAZOLE BENZOATE
     Indication: URINARY TRACT INFECTION
     Dosage: UNK
     Route: 042
     Dates: start: 20170606, end: 20170613

REACTIONS (3)
  - Drug interaction [Fatal]
  - Cerebral haemorrhage [Fatal]
  - International normalised ratio increased [Unknown]

NARRATIVE: CASE EVENT DATE: 20170613
